FAERS Safety Report 5914026-X (Version None)
Quarter: 2008Q4

REPORT INFORMATION
  Report Type: 
  Country: None (occurrence: None)
  Receive Date: 20081009
  Receipt Date: 20081001
  Transmission Date: 20090506
  Serious: Yes (Other)
  Sender: FDA-Public Use
  Company Number: RO-NOVOPROD-280024

PATIENT
  Age: 49 Year
  Sex: Male

DRUGS (3)
  1. NOVORAPID [Suspect]
     Indication: DRUG USE FOR UNKNOWN INDICATION
     Dosage: 12 IU, QD
     Route: 058
  2. RINGER LACTATE                     /01126301/ [Concomitant]
     Dosage: 1000 ML, QD
  3. SODIUM CHLORIDE 0.9% [Concomitant]
     Dosage: 500 ML, QD; 0.9 %

REACTIONS (2)
  - HYPOGLYCAEMIC COMA [None]
  - PULMONARY OEDEMA [None]
